FAERS Safety Report 7247576-7 (Version None)
Quarter: 2011Q1

REPORT INFORMATION
  Report Type: 
  Country: None (occurrence: None)
  Receive Date: 20110127
  Receipt Date: 20110119
  Transmission Date: 20110831
  Serious: Yes (Other)
  Sender: FDA-Public Use
  Company Number: ES-ROCHE-754683

PATIENT

DRUGS (7)
  1. FLUOROURACIL [Suspect]
     Route: 065
  2. CAPECITABINE [Suspect]
     Route: 065
  3. OXALIPLATIN [Suspect]
     Route: 065
  4. PACLITAXEL [Suspect]
     Route: 065
  5. IRINOTECAN HCL [Suspect]
     Route: 065
  6. LEUCOVORIN CALCIUM [Suspect]
     Route: 065
  7. CARBOPLATIN [Suspect]
     Route: 065

REACTIONS (9)
  - ENCEPHALOPATHY [None]
  - DYSPEPSIA [None]
  - PERIPHERAL SENSORY NEUROPATHY [None]
  - STOMATITIS [None]
  - VOMITING [None]
  - MUCOSAL INFLAMMATION [None]
  - PERIPHERAL MOTOR NEUROPATHY [None]
  - DIZZINESS [None]
  - DIARRHOEA [None]
